FAERS Safety Report 7933458-1 (Version None)
Quarter: 2011Q4

REPORT INFORMATION
  Report Type: 
  Country: None (occurrence: None)
  Receive Date: 20111122
  Receipt Date: 20110904
  Transmission Date: 20120403
  Serious: No
  Sender: FDA-Public Use
  Company Number: US-BAYER-2011-088767

PATIENT
  Sex: Female

DRUGS (4)
  1. ACETAMINOPHEN [Suspect]
     Indication: TOOTHACHE
  2. ALEVE (CAPLET) [Suspect]
     Indication: TOOTHACHE
     Dosage: 3 DF, UNK
     Route: 048
  3. VICODIN [Suspect]
     Indication: TOOTHACHE
     Dosage: 3 DF, UNK
  4. ALCOHOL [Suspect]
     Indication: TOOTHACHE

REACTIONS (1)
  - TOOTHACHE [None]
